FAERS Safety Report 9122988 (Version 1)
Quarter: 2013Q1

REPORT INFORMATION
  Report Type: Spontaneous
  Country: US (occurrence: US)
  Receive Date: 20130115
  Receipt Date: 20130115
  Transmission Date: 20140127
  Serious: Yes (Hospitalization)
  Sender: FDA-Public Use
  Company Number: US-BAYER-2013-003937

PATIENT
  Age: 39 Year
  Sex: Female
  Weight: 106.58 kg

DRUGS (4)
  1. YAZ [Suspect]
     Dosage: UNK
  2. ALBUTEROL [Concomitant]
  3. PERCOCET [Concomitant]
     Dosage: 5/325 MG
     Route: 048
  4. NAPROSYN [Concomitant]
     Route: 048

REACTIONS (2)
  - Pulmonary embolism [None]
  - Deep vein thrombosis [None]
